FAERS Safety Report 7101350-0 (Version None)
Quarter: 2010Q4

REPORT INFORMATION
  Report Type: 
  Country: None (occurrence: None)
  Receive Date: 20101115
  Receipt Date: 20101101
  Transmission Date: 20110411
  Serious: Yes (Hospitalization, Other)
  Sender: FDA-Public Use
  Company Number: US-ELI_LILLY_AND_COMPANY-US201011000654

PATIENT
  Sex: Female

DRUGS (10)
  1. FORTEO [Suspect]
     Indication: OSTEOPOROSIS
     Dosage: 20 UG, DAILY (1/D)
     Dates: end: 20100921
  2. LEVOTHYROXINE [Concomitant]
  3. SOTALOL [Concomitant]
  4. TRIAMTERENE [Concomitant]
  5. LEXAPRO [Concomitant]
  6. ASPIRIN [Concomitant]
  7. LIPITOR [Concomitant]
  8. ZETIA [Concomitant]
  9. DIOVAN [Concomitant]
  10. DYAZIDE [Concomitant]

REACTIONS (2)
  - FALL [None]
  - HIP FRACTURE [None]
